FAERS Safety Report 7688086-2 (Version None)
Quarter: 2011Q3

REPORT INFORMATION
  Report Type: 
  Country: None (occurrence: None)
  Receive Date: 20110817
  Receipt Date: 20110808
  Transmission Date: 20111222
  Serious: Yes (Death)
  Sender: FDA-Public Use
  Company Number: JP-BRISTOL-MYERS SQUIBB COMPANY-15973647

PATIENT
  Age: 6 Year
  Sex: Male

DRUGS (3)
  1. BLEOMYCIN SULFATE [Suspect]
     Indication: GERM CELL CANCER
  2. CYCLOPHOSPHAMIDE [Suspect]
     Indication: GERM CELL CANCER
  3. VINCRISTINE [Suspect]
     Indication: GERM CELL CANCER

REACTIONS (1)
  - SEPSIS [None]
